FAERS Safety Report 21009199 (Version 1)
Quarter: 2022Q2

REPORT INFORMATION
  Report Type: Spontaneous
  Country: US (occurrence: None)
  Receive Date: 20220625
  Receipt Date: 20220625
  Transmission Date: 20220720
  Serious: Yes (Other)
  Sender: FDA-Public Use
  Company Number: None

PATIENT
  Age: 29 Year
  Weight: 51.75 kg

DRUGS (2)
  1. .DELTA.8-TETRAHYDROCANNABINOL\HERBALS [Suspect]
     Active Substance: .DELTA.8-TETRAHYDROCANNABINOL\HERBALS
     Indication: Pain
     Route: 048
     Dates: start: 20220116, end: 20220116
  2. IMPLANTED NERVE STIMULATOR FOR PAIN RELIEF [Concomitant]

REACTIONS (9)
  - Hallucinations, mixed [None]
  - Paranoia [None]
  - Anxiety [None]
  - Vomiting projectile [None]
  - Chest discomfort [None]
  - Decreased appetite [None]
  - Tremor [None]
  - Suicidal ideation [None]
  - Suspected product quality issue [None]

NARRATIVE: CASE EVENT DATE: 20220116
